FAERS Safety Report 8473781-8 (Version None)
Quarter: 2012Q2

REPORT INFORMATION
  Report Type: 
  Country: None (occurrence: None)
  Receive Date: 20120628
  Receipt Date: 20111129
  Transmission Date: 20120825
  Serious: Yes (Other)
  Sender: FDA-Public Use
  Company Number: US-MYLANLABS-2011S1023174

PATIENT
  Age: 65 Year
  Sex: Female
  Weight: 65.09 kg

DRUGS (11)
  1. CELEXA [Concomitant]
     Route: 048
  2. RISPERIDONE [Concomitant]
     Route: 048
  3. COGENTIN [Concomitant]
     Route: 048
  4. CLOZAPINE [Suspect]
     Indication: PSYCHOTIC DISORDER
     Route: 048
     Dates: start: 20111003, end: 20111006
  5. MINOCYCLINE HCL [Concomitant]
     Route: 048
  6. VITAMIN D [Concomitant]
     Route: 048
  7. OMEPRAZOLE [Concomitant]
     Route: 048
  8. RISPERIDONE [Concomitant]
     Route: 048
  9. CLOZAPINE [Suspect]
     Route: 048
     Dates: start: 20111007, end: 20111020
  10. LEVOTHYROXINE [Concomitant]
     Route: 048
  11. ATIVAN [Concomitant]
     Route: 048

REACTIONS (4)
  - LEUKOPENIA [None]
  - AGRANULOCYTOSIS [None]
  - HEART RATE INCREASED [None]
  - CHEST PAIN [None]
